FAERS Safety Report 5804597-6 (Version None)
Quarter: 2008Q3

REPORT INFORMATION
  Report Type: 
  Country: None (occurrence: None)
  Receive Date: 20080709
  Receipt Date: 20080701
  Transmission Date: 20090109
  Serious: Yes (Other)
  Sender: FDA-Public Use
  Company Number: SY-AMGEN-UK291183

PATIENT
  Sex: Male
  Weight: 77 kg

DRUGS (1)
  1. NEUPOGEN [Suspect]
     Indication: CHRONIC MYELOID LEUKAEMIA
     Route: 058
     Dates: start: 20080623, end: 20080630

REACTIONS (1)
  - WHITE BLOOD CELL COUNT DECREASED [None]
